FAERS Safety Report 5245979-3 (Version None)
Quarter: 2007Q1

REPORT INFORMATION
  Report Type: 
  Country: None (occurrence: None)
  Receive Date: 20070214
  Receipt Date: 20070126
  Transmission Date: 20070707
  Serious: No
  Sender: FDA-Public Use
  Company Number: 2007-153700-NL

PATIENT
  Age: 66 Year
  Sex: Female

DRUGS (1)
  1. MIRTAZAPINE [Suspect]
     Dosage: NI ORAL
     Route: 048
     Dates: start: 20060501, end: 20061001

REACTIONS (4)
  - HAEMOLYTIC ANAEMIA [None]
  - LEUKOPENIA [None]
  - THROMBOCYTOPENIA [None]
  - VITAMIN B12 DECREASED [None]
